FAERS Safety Report 16877026 (Version 1)
Quarter: 2019Q4

REPORT INFORMATION
  Report Type: Spontaneous
  Country: US (occurrence: US)
  Receive Date: 20191002
  Receipt Date: 20191002
  Transmission Date: 20200122
  Serious: Yes (Hospitalization)
  Sender: FDA-Public Use
  Company Number: US-ASTRAZENECA-2019SF38044

PATIENT
  Sex: Male
  Weight: 13 kg

DRUGS (2)
  1. SYNAGIS [Suspect]
     Active Substance: PALIVIZUMAB
     Indication: PULMONARY ARTERY ATRESIA
     Dosage: 15.0MG/KG ONCE/SINGLE ADMINISTRATION
     Route: 030
  2. SYNAGIS [Suspect]
     Active Substance: PALIVIZUMAB
     Indication: MULTIPLE CONGENITAL ABNORMALITIES
     Dosage: 15.0MG/KG ONCE/SINGLE ADMINISTRATION
     Route: 030

REACTIONS (1)
  - Cough [Unknown]
